FAERS Safety Report 8851068 (Version 1)
Quarter: 2012Q4

REPORT INFORMATION
  Report Type: 
  Country: US (occurrence: US)
  Receive Date: 20121019
  Receipt Date: 20121019
  Transmission Date: 20130627
  Serious: Yes (Other)
  Sender: FDA-Public Use
  Company Number: US-BAYER-2012-106759

PATIENT
  Age: 53 Year
  Sex: Female
  Weight: 81.63 kg

DRUGS (1)
  1. ALKA-SELTZER PLUS DAY AND NIGHT MULTI-SYMPTOM COLD AND FLU FORMULA [Suspect]
     Indication: NASOPHARYNGITIS
     Dosage: 2 TAB, Used Only One Time
     Route: 048
     Dates: start: 20121008, end: 20121008

REACTIONS (2)
  - Tremor [Recovered/Resolved]
  - Dyspnoea [Recovered/Resolved]
